FAERS Safety Report 5670012-9 (Version None)
Quarter: 2008Q1

REPORT INFORMATION
  Report Type: 
  Country: None (occurrence: None)
  Receive Date: 20080317
  Receipt Date: 20080312
  Transmission Date: 20080703
  Serious: Yes (Other)
  Sender: FDA-Public Use
  Company Number: NL-BOEHRINGER INGELHEIM GMBH, GERMANY-2008-BP-03916YA

PATIENT
  Sex: Male

DRUGS (1)
  1. OMNIC OCAS ORODISPERSABLE CR [Suspect]
     Indication: BENIGN PROSTATIC HYPERPLASIA
     Route: 048
     Dates: start: 20070821

REACTIONS (1)
  - PAROSMIA [None]
